FAERS Safety Report 5962692-5 (Version None)
Quarter: 2008Q4

REPORT INFORMATION
  Report Type: 
  Country: None (occurrence: None)
  Receive Date: 20081124
  Receipt Date: 20081117
  Transmission Date: 20090506
  Serious: Yes (Hospitalization)
  Sender: FDA-Public Use
  Company Number: DE-JNJFOC-20081103616

PATIENT
  Age: 74 Year
  Sex: Female

DRUGS (8)
  1. HALDOL [Suspect]
     Route: 048
  2. HALDOL [Suspect]
     Route: 048
  3. HALDOL [Suspect]
     Route: 048
  4. HALDOL [Suspect]
     Route: 048
  5. HALDOL [Suspect]
     Route: 048
  6. HALDOL [Suspect]
     Route: 048
  7. HALDOL [Suspect]
     Route: 048
  8. HALDOL [Suspect]
     Indication: DRUG USE FOR UNKNOWN INDICATION
     Route: 048

REACTIONS (1)
  - PARKINSONISM [None]
